FAERS Safety Report 22226123 (Version 2)
Quarter: 2023Q2

REPORT INFORMATION
  Report Type: Spontaneous
  Country: CN (occurrence: CN)
  Receive Date: 20230419
  Receipt Date: 20230422
  Transmission Date: 20230722
  Serious: Yes (Death, Hospitalization)
  Sender: FDA-Public Use
  Company Number: CN-STRIDES ARCOLAB LIMITED-2023SP005535

PATIENT
  Age: 43 Year
  Sex: Female

DRUGS (8)
  1. ETOPOSIDE [Suspect]
     Active Substance: ETOPOSIDE
     Indication: Haemophagocytic lymphohistiocytosis
     Dosage: UNK, RECEIVED ECOP REGIMEN
     Route: 065
     Dates: start: 20150917
  2. ETOPOSIDE [Suspect]
     Active Substance: ETOPOSIDE
     Indication: T-cell lymphoma
     Dosage: UNK
     Route: 065
     Dates: start: 20151030
  3. DEXAMETHASONE [Suspect]
     Active Substance: DEXAMETHASONE
     Indication: Haemophagocytic lymphohistiocytosis
     Dosage: UNK, RECEIVED ECOP REGIMEN
     Route: 065
     Dates: start: 20150917
  4. DEXAMETHASONE [Suspect]
     Active Substance: DEXAMETHASONE
     Indication: T-cell lymphoma
     Dosage: UNK
     Route: 065
     Dates: start: 20151030
  5. CYCLOPHOSPHAMIDE [Suspect]
     Active Substance: CYCLOPHOSPHAMIDE
     Indication: Haemophagocytic lymphohistiocytosis
     Dosage: UNK, RECEIVED ECOP REGIMEN
     Route: 065
     Dates: start: 20150917
  6. CYCLOPHOSPHAMIDE [Suspect]
     Active Substance: CYCLOPHOSPHAMIDE
     Indication: T-cell lymphoma
     Dosage: UNK
     Route: 065
     Dates: start: 20151030
  7. VINDESINE [Suspect]
     Active Substance: VINDESINE
     Indication: Haemophagocytic lymphohistiocytosis
     Dosage: UNK, RECEIVED ECOP REGIMEN
     Route: 065
     Dates: start: 20150917
  8. VINDESINE [Suspect]
     Active Substance: VINDESINE
     Indication: T-cell lymphoma
     Dosage: UNK
     Route: 065
     Dates: start: 20151030

REACTIONS (6)
  - Pulmonary mucormycosis [Fatal]
  - Multiple organ dysfunction syndrome [Fatal]
  - Disease progression [Fatal]
  - Pneumonia acinetobacter [Recovered/Resolved]
  - Haematological infection [Unknown]
  - Off label use [Unknown]

NARRATIVE: CASE EVENT DATE: 20150101
